FAERS Safety Report 8614539 (Version 3)
Quarter: 2012Q4

REPORT INFORMATION
  Report Type: Report from Study
  Country: CA (occurrence: CA)
  Receive Date: 20120614
  Receipt Date: 20121011
  Transmission Date: 20130627
  Serious: Yes (Death, Hospitalization, Other)
  Sender: FDA-Public Use
  Company Number: CA-ROCHE-1076123

PATIENT
  Age: 69 Year
  Sex: Male
  Weight: 79.45 kg

DRUGS (12)
  1. ROACTEMRA [Suspect]
     Indication: RHEUMATOID ARTHRITIS
     Route: 042
     Dates: start: 20111215
  2. SPIRIVA [Concomitant]
  3. ADVAIR [Concomitant]
  4. PRADAX [Concomitant]
  5. LANSOPRAZOLE [Concomitant]
  6. SPIRONOLACTONE [Concomitant]
  7. SYNTHROID [Concomitant]
  8. PREDNISONE [Concomitant]
  9. BISOPROLOL [Concomitant]
  10. COLCHICINE [Concomitant]
  11. LIPITOR [Concomitant]
  12. DIDROCAL [Concomitant]

REACTIONS (6)
  - Atrial fibrillation [Unknown]
  - Abdominal pain [Unknown]
  - Bile duct obstruction [Recovered/Resolved]
  - Pancreatic carcinoma [Not Recovered/Not Resolved]
  - Malaise [Not Recovered/Not Resolved]
  - Cardiac procedure complication [Fatal]
